FAERS Safety Report 10884867 (Version 1)
Quarter: 2015Q1

REPORT INFORMATION
  Report Type: Spontaneous
  Country: US (occurrence: None)
  Receive Date: 20150227
  Receipt Date: 20150227
  Transmission Date: 20150721
  Serious: Yes (Hospitalization)
  Sender: FDA-Public Use
  Company Number: None

PATIENT
  Age: 75 Year
  Sex: Female
  Weight: 68.2 kg

DRUGS (3)
  1. LENALIDOMIDE (CC-5013) [Suspect]
     Active Substance: LENALIDOMIDE
     Dates: end: 20150127
  2. RITUXIMAB (MOAB C2B8 ANTI CD20, CHIMERIC) [Suspect]
     Active Substance: RITUXIMAB
     Dates: end: 20150115
  3. DYAZIDE [Concomitant]
     Active Substance: HYDROCHLOROTHIAZIDE\TRIAMTERENE

REACTIONS (19)
  - Cervical vertebral fracture [None]
  - Blood potassium decreased [None]
  - Thoracic vertebral fracture [None]
  - Cardiac murmur [None]
  - Nausea [None]
  - Vomiting [None]
  - Headache [None]
  - Presyncope [None]
  - Sinus disorder [None]
  - Hyperhidrosis [None]
  - Feeling abnormal [None]
  - Neck pain [None]
  - Fall [None]
  - Syncope [None]
  - Fracture displacement [None]
  - Hyponatraemia [None]
  - Head injury [None]
  - Spinal compression fracture [None]
  - Acute sinusitis [None]

NARRATIVE: CASE EVENT DATE: 20150128
